FAERS Safety Report 8855100 (Version 1)
Quarter: 2012Q4

REPORT INFORMATION
  Report Type: 
  Country: US (occurrence: US)
  Receive Date: 20121023
  Receipt Date: 20121023
  Transmission Date: 20130627
  Serious: No
  Sender: FDA-Public Use
  Company Number: US-009507513-1210USA006922

PATIENT
  Age: 66 Year
  Sex: Female

DRUGS (1)
  1. NASONEX [Suspect]
     Indication: HYPERSENSITIVITY
     Dosage: 2 spray each nostril, qd
     Route: 045
     Dates: start: 20121010, end: 20121012

REACTIONS (6)
  - Genital herpes [Recovering/Resolving]
  - Glossodynia [Recovering/Resolving]
  - Cheilitis [Recovering/Resolving]
  - Pigmentation lip [Recovering/Resolving]
  - Oral papule [Recovering/Resolving]
  - Gingival inflammation [Recovering/Resolving]
